FAERS Safety Report 9485484 (Version 2)
Quarter: 2013Q3

REPORT INFORMATION
  Report Type: Spontaneous
  Country: US (occurrence: US)
  Receive Date: 20130829
  Receipt Date: 20130906
  Transmission Date: 20140515
  Serious: No
  Sender: FDA-Public Use
  Company Number: US-BIOGENIDEC-2013BI079715

PATIENT
  Age: 68 Year
  Sex: Female

DRUGS (2)
  1. AVONEX [Suspect]
     Indication: MULTIPLE SCLEROSIS
     Route: 030
     Dates: start: 20110621
  2. AVONEX [Suspect]
     Indication: MULTIPLE SCLEROSIS
     Route: 030
     Dates: start: 20130813

REACTIONS (5)
  - Nasal congestion [Not Recovered/Not Resolved]
  - Headache [Recovered/Resolved]
  - Night sweats [Not Recovered/Not Resolved]
  - Initial insomnia [Not Recovered/Not Resolved]
  - Influenza like illness [Recovered/Resolved]
